FAERS Safety Report 8266928-X (Version None)
Quarter: 2012Q2

REPORT INFORMATION
  Report Type: 
  Country: None (occurrence: None)
  Receive Date: 20120404
  Receipt Date: 20120404
  Transmission Date: 20120825
  Serious: Yes (Hospitalization)
  Sender: FDA-Public Use
  Company Number: None

PATIENT
  Age: 68 Year
  Sex: Male
  Weight: 120.6 kg

DRUGS (11)
  1. ASPIRIN [Suspect]
     Indication: CORONARY ARTERY DISEASE
     Dosage: 81MG DAILY PO CHRONIC
     Route: 048
  2. FERROUS SULFATE TAB [Concomitant]
  3. PLAVIX [Suspect]
     Indication: STENT PLACEMENT
     Dosage: 75MG / DAILY / PO RECENT
     Route: 048
  4. COREG [Concomitant]
  5. BICALUTAMIDE [Concomitant]
  6. VIT D3 [Concomitant]
  7. CALCIUM CARBONATE [Concomitant]
  8. VISIPAQUE [Suspect]
     Dosage: RECENT
  9. LASIX [Concomitant]
  10. PERCOCET [Concomitant]
  11. HUMALOG [Concomitant]

REACTIONS (4)
  - GASTROINTESTINAL HAEMORRHAGE [None]
  - DEHYDRATION [None]
  - CONTRAST MEDIA REACTION [None]
  - RENAL FAILURE ACUTE [None]
